FAERS Safety Report 4353730-4 (Version None)
Quarter: 2004Q2

REPORT INFORMATION
  Report Type: 
  Country: None (occurrence: None)
  Receive Date: 20040430
  Receipt Date: 20030506
  Transmission Date: 20050107
  Serious: Yes (Other)
  Sender: FDA-Public Use
  Company Number: 2003016431

PATIENT
  Age: 34 Year
  Sex: Female
  Weight: 54.4316 kg

DRUGS (3)
  1. BENADRYL [Suspect]
     Indication: HYPERSENSITIVITY
     Dosage: (ONCE), INTRAVENOUS
     Route: 042
     Dates: start: 20020831, end: 20020831
  2. POVIDONE IODINE [Suspect]
     Indication: ILL-DEFINED DISORDER
     Dates: start: 20020831
  3. ALL OTHER THERAPEUTIC PRODUCTS (ALL OTEHR THERAPEUTIC PRODUCTS) [Concomitant]

REACTIONS (1)
  - ANAPHYLACTIC REACTION [None]
